FAERS Safety Report 7134812-0 (Version None)
Quarter: 2010Q4

REPORT INFORMATION
  Report Type: 
  Country: None (occurrence: None)
  Receive Date: 20101203
  Receipt Date: 20101123
  Transmission Date: 20110411
  Serious: Yes (Death)
  Sender: FDA-Public Use
  Company Number: GXKR2010DE13291

PATIENT
  Age: 53 Year
  Sex: Female

DRUGS (5)
  1. FLUOXETINE [Suspect]
     Indication: DEPRESSION
     Dosage: 10 MG/DAY
  2. FLUOXETINE [Interacting]
     Dosage: 30 MG
     Route: 048
  3. SERTRALINE (NGX) [Interacting]
     Dosage: 150 MG
     Route: 048
  4. TRANYLCYPROMINE SULFATE [Interacting]
     Dosage: 70 MG, UNK
     Route: 048
  5. TYRAMINE [Interacting]
     Dosage: TYRAMINE-RICH FOOD: RED WINE, AGED CHEESE
     Route: 048

REACTIONS (20)
  - AGITATION [None]
  - ALCOHOL POISONING [None]
  - CARDIAC ARREST [None]
  - COMPLETED SUICIDE [None]
  - DISORIENTATION [None]
  - DISSEMINATED INTRAVASCULAR COAGULATION [None]
  - DRUG INTERACTION [None]
  - FOOD INTERACTION [None]
  - HAEMORRHAGE [None]
  - HYPERHIDROSIS [None]
  - HYPERTHERMIA [None]
  - HYPERTONIA [None]
  - INTENTIONAL OVERDOSE [None]
  - MECHANICAL VENTILATION [None]
  - MULTIPLE DRUG OVERDOSE INTENTIONAL [None]
  - RESPIRATORY FAILURE [None]
  - RESUSCITATION [None]
  - SALIVARY HYPERSECRETION [None]
  - SEROTONIN SYNDROME [None]
  - TACHYCARDIA [None]
